FAERS Safety Report 12457336 (Version 2)
Quarter: 2016Q2

REPORT INFORMATION
  Report Type: Spontaneous
  Country: CN (occurrence: CN)
  Receive Date: 20160610
  Receipt Date: 20160616
  Transmission Date: 20160815
  Serious: Yes (Hospitalization)
  Sender: FDA-Public Use
  Company Number: CN-SA-2016SA106413

PATIENT
  Age: 69 Year
  Sex: Male
  Weight: 62.5 kg

DRUGS (4)
  1. ISOSOR [Concomitant]
     Indication: ARTERIOSCLEROSIS
     Dosage: DOSE:FOR 30MG 2 TABLETS/BID AND FOR 60MG 1 TAB/BID
     Route: 048
     Dates: start: 2014
  2. SIMVASTATIN. [Concomitant]
     Active Substance: SIMVASTATIN
     Indication: STENT PLACEMENT
     Route: 048
     Dates: start: 2014
  3. ASPIRIN. [Concomitant]
     Active Substance: ASPIRIN
     Indication: STENT PLACEMENT
     Route: 048
     Dates: start: 2014
  4. PLAVIX [Suspect]
     Active Substance: CLOPIDOGREL BISULFATE
     Indication: STENT PLACEMENT
     Route: 048
     Dates: start: 2014

REACTIONS (8)
  - Syncope [Recovered/Resolved]
  - Angina pectoris [Recovered/Resolved]
  - Shock [Recovered/Resolved]
  - Chest discomfort [Recovered/Resolved]
  - Dyspnoea [Recovered/Resolved]
  - Product counterfeit [Unknown]
  - Disorientation [Recovered/Resolved]
  - Palpitations [Recovered/Resolved]

NARRATIVE: CASE EVENT DATE: 2015
